FAERS Safety Report 25462806 (Version 2)
Quarter: 2025Q2

REPORT INFORMATION
  Report Type: Spontaneous
  Country: CN (occurrence: CN)
  Receive Date: 20250620
  Receipt Date: 20250627
  Transmission Date: 20250717
  Serious: Yes (Hospitalization)
  Sender: NOVARTIS
  Company Number: CN-002147023-NVSC2025CN095113

PATIENT
  Age: 49 Year
  Sex: Female
  Weight: 57.5 kg

DRUGS (3)
  1. TEGRETOL [Suspect]
     Active Substance: CARBAMAZEPINE
     Indication: Symptomatic treatment
     Dosage: 0.2 G, QD
     Route: 048
     Dates: start: 20250519, end: 20250601
  2. METHYLCOBALAMIN [Concomitant]
     Active Substance: METHYLCOBALAMIN
     Indication: Product used for unknown indication
     Dosage: 0.5 MG, TID
     Route: 048
     Dates: start: 20250519, end: 20250601
  3. Bendazol [Concomitant]
     Indication: Product used for unknown indication
     Dosage: 10 MG, TID
     Route: 048
     Dates: start: 20250519, end: 20250601

REACTIONS (3)
  - Thrombocytopenic purpura [Recovering/Resolving]
  - Megakaryocytes abnormal [Unknown]
  - Immune thrombocytopenia [Unknown]
